FAERS Safety Report 4972213-1 (Version None)
Quarter: 2006Q2

REPORT INFORMATION
  Report Type: 
  Country: None (occurrence: None)
  Receive Date: 20060413
  Receipt Date: 20060406
  Transmission Date: 20061013
  Serious: Yes (Hospitalization)
  Sender: FDA-Public Use
  Company Number: FR-GLAXOSMITHKLINE-B0419575A

PATIENT
  Age: 43 Year
  Sex: Male
  Weight: 68 kg

DRUGS (5)
  1. EPIVIR [Suspect]
     Indication: HIV INFECTION
     Dosage: 300MG PER DAY
     Route: 048
  2. LEDERFOLINE [Suspect]
     Indication: PROPHYLAXIS
     Dosage: 25MG WEEKLY
     Route: 048
  3. VIDEX [Suspect]
     Indication: HIV INFECTION
     Dosage: 400MG PER DAY
     Route: 048
  4. NORVIR [Suspect]
     Indication: HIV INFECTION
     Dosage: 100MG PER DAY
     Route: 048
  5. REYATAZ [Suspect]
     Indication: HIV INFECTION
     Dosage: 300MG PER DAY
     Route: 048

REACTIONS (6)
  - ABDOMINAL PAIN LOWER [None]
  - BACTERIAL INFECTION [None]
  - CHILLS [None]
  - NEPHROLITHIASIS [None]
  - PYREXIA [None]
  - RENAL COLIC [None]
